FAERS Safety Report 9804432 (Version 1)
Quarter: 2014Q1

REPORT INFORMATION
  Report Type: Spontaneous
  Country: FR (occurrence: FR)
  Receive Date: 20140108
  Receipt Date: 20140108
  Transmission Date: 20141002
  Serious: Yes (Death, Other)
  Sender: FDA-Public Use
  Company Number: FR-VERTEX PHARMACEUTICALS INC-2014-000082

PATIENT
  Sex: 0

DRUGS (4)
  1. INCIVO [Suspect]
     Indication: CHRONIC HEPATITIS C
     Dosage: 750 MG, TID
     Route: 065
  2. RIBAVIRIN [Suspect]
     Indication: CHRONIC HEPATITIS C
     Route: 065
  3. PEGASYS [Suspect]
     Indication: CHRONIC HEPATITIS C
     Route: 065
  4. VIRAFERON PEG [Suspect]
     Indication: CHRONIC HEPATITIS C
     Route: 065

REACTIONS (10)
  - Septic shock [Fatal]
  - Urinary tract infection [Fatal]
  - Infection [Unknown]
  - Neutropenia [Unknown]
  - Renal failure [Unknown]
  - Thrombocytopenia [Unknown]
  - Anaemia [Unknown]
  - Anal pruritus [Unknown]
  - Drug ineffective [Unknown]
  - Viral load increased [Unknown]
